FAERS Safety Report 5323964-0 (Version None)
Quarter: 2007Q2

REPORT INFORMATION
  Report Type: 
  Country: None (occurrence: None)
  Receive Date: 20070509
  Receipt Date: 20070509
  Transmission Date: 20071010
  Serious: Yes (Other)
  Sender: FDA-Public Use
  Company Number: None

PATIENT
  Sex: Female
  Weight: 70.3075 kg

DRUGS (1)
  1. MIRENA [Suspect]
     Indication: CONTRACEPTION
     Dates: start: 20050130, end: 20070426

REACTIONS (8)
  - ACNE [None]
  - ANGER [None]
  - DEPRESSION [None]
  - FLUID RETENTION [None]
  - IRRITABILITY [None]
  - LOSS OF LIBIDO [None]
  - SUICIDAL IDEATION [None]
  - WEIGHT INCREASED [None]
